FAERS Safety Report 21764204 (Version 1)
Quarter: 2022Q4

REPORT INFORMATION
  Report Type: Spontaneous
  Country: US (occurrence: US)
  Receive Date: 20221222
  Receipt Date: 20221222
  Transmission Date: 20230112
  Serious: Yes (Other)
  Sender: FDA-Public Use
  Company Number: US-INCYTE CORPORATION-2022IN012206

PATIENT

DRUGS (1)
  1. PEMAZYRE [Suspect]
     Active Substance: PEMIGATINIB
     Indication: Cholangiocarcinoma
     Dosage: 4 CYCLES (TAKING IT FOR 2 WEEKS AND HAVING 1 WEEK OF BREAK)
     Route: 065

REACTIONS (1)
  - Metastatic neoplasm [Unknown]
